FAERS Safety Report 19086428 (Version 1)
Quarter: 2021Q2

REPORT INFORMATION
  Report Type: Spontaneous
  Country: US (occurrence: US)
  Receive Date: 20210402
  Receipt Date: 20210402
  Transmission Date: 20210717
  Serious: No
  Sender: FDA-Public Use
  Company Number: US-BAYER-2021-116522

PATIENT
  Age: 32 Year
  Sex: Female

DRUGS (2)
  1. DICLOXACILLIN [Concomitant]
     Active Substance: DICLOXACILLIN
     Indication: BACTERIAL INFECTION
     Dates: end: 20210324
  2. MIRENA [Suspect]
     Active Substance: LEVONORGESTREL
     Indication: CONTRACEPTION
     Dosage: 20?G PER DAY, CONTINUOUSLY
     Route: 015
     Dates: start: 20210323

REACTIONS (3)
  - Depression [None]
  - Rash [Recovered/Resolved]
  - Rash [None]

NARRATIVE: CASE EVENT DATE: 20210324
